FAERS Safety Report 6686711-6 (Version None)
Quarter: 2010Q2

REPORT INFORMATION
  Report Type: 
  Country: None (occurrence: None)
  Receive Date: 20100414
  Receipt Date: 20100330
  Transmission Date: 20101027
  Serious: Yes (Hospitalization)
  Sender: FDA-Public Use
  Company Number: 2010001170

PATIENT
  Sex: Female
  Weight: 57.2 kg

DRUGS (3)
  1. ERLOTINIB (ERLOTINIB) (TABLET) (ERLOTINIB) [Suspect]
     Indication: PANCREATIC CARCINOMA METASTATIC
     Dosage: (100 MG,QD),ORAL
     Route: 048
     Dates: start: 20090824
  2. GEMCITABINE [Suspect]
     Indication: PANCREATIC CARCINOMA METASTATIC
     Dosage: (1000 MG/M2,DAYS 1, 8, AND 15),INTRAVENOUS
     Route: 042
     Dates: start: 20090824
  3. IMC-A12 (INJECTION FOR INFUSION) [Suspect]
     Indication: PANCREATIC CARCINOMA METASTATIC
     Dosage: (6 MG/KG,DAYS 1, 8, 15 AND 22),INTRAVENOUS
     Route: 042
     Dates: start: 20090824

REACTIONS (4)
  - DEVICE OCCLUSION [None]
  - INFECTION [None]
  - PULMONARY EMBOLISM [None]
  - THROMBOSIS [None]
